FAERS Safety Report 8106536-4 (Version None)
Quarter: 2012Q1

REPORT INFORMATION
  Report Type: 
  Country: None (occurrence: None)
  Receive Date: 20120202
  Receipt Date: 20120124
  Transmission Date: 20120608
  Serious: Yes (Hospitalization)
  Sender: FDA-Public Use
  Company Number: US-BRISTOL-MYERS SQUIBB COMPANY-16365678

PATIENT
  Age: 89 Year
  Sex: Male
  Weight: 81 kg

DRUGS (3)
  1. DIGOXIN [Concomitant]
  2. ASPIRIN [Concomitant]
  3. ENCAINIDE HCL [Suspect]

REACTIONS (3)
  - THROMBOCYTOPENIA [None]
  - EXPIRED DRUG ADMINISTERED [None]
  - ANAEMIA [None]
